FAERS Safety Report 20577625 (Version 1)
Quarter: 2022Q1

REPORT INFORMATION
  Report Type: Spontaneous
  Country: US (occurrence: None)
  Receive Date: 20220310
  Receipt Date: 20220310
  Transmission Date: 20220423
  Serious: Yes (Hospitalization)
  Sender: FDA-Public Use
  Company Number: None

PATIENT
  Age: 56 Year
  Sex: Male
  Weight: 73.03 kg

DRUGS (2)
  1. DIGOXIN [Suspect]
     Active Substance: DIGOXIN
     Indication: Atrial flutter
     Dates: start: 20220101, end: 20220101
  2. LANOXIN [Suspect]
     Active Substance: DIGOXIN
     Indication: Product used for unknown indication
     Dates: start: 20220102, end: 20220102

REACTIONS (6)
  - Nausea [None]
  - Vomiting [None]
  - Abdominal discomfort [None]
  - Nodal rhythm [None]
  - Palpitations [None]
  - Cardioactive drug level increased [None]

NARRATIVE: CASE EVENT DATE: 20220301
